FAERS Safety Report 19436303 (Version 2)
Quarter: 2021Q3

REPORT INFORMATION
  Report Type: Spontaneous
  Country: US (occurrence: US)
  Receive Date: 20210618
  Receipt Date: 20210806
  Transmission Date: 20211014
  Serious: No
  Sender: FDA-Public Use
  Company Number: US-ASTRAZENECA-2021A520874

PATIENT

DRUGS (1)
  1. SYMBICORT [Suspect]
     Active Substance: BUDESONIDE\FORMOTEROL FUMARATE DIHYDRATE
     Indication: PULMONARY FIBROSIS
     Dosage: 160/4.5MCG 2 PUFFS TWICE DAILY
     Route: 055
     Dates: start: 202104

REACTIONS (3)
  - Device defective [Unknown]
  - Intentional device misuse [Unknown]
  - Dysgeusia [Unknown]
